FAERS Safety Report 15181088 (Version 2)
Quarter: 2018Q3

REPORT INFORMATION
  Report Type: Spontaneous
  Country: US (occurrence: US)
  Receive Date: 20180723
  Receipt Date: 20180801
  Transmission Date: 20181010
  Serious: Yes (Other)
  Sender: FDA-Public Use
  Company Number: US-PFIZER INC-2018289845

PATIENT
  Age: 32 Year
  Sex: Female

DRUGS (9)
  1. FENTANYL. [Concomitant]
     Active Substance: FENTANYL
     Indication: SEDATIVE THERAPY
     Dosage: 200 UG, UNK
  2. MORPHINE [Concomitant]
     Active Substance: MORPHINE
     Indication: SEDATIVE THERAPY
     Dosage: 4 MG, UNK
  3. PROPOFOL. [Suspect]
     Active Substance: PROPOFOL
     Indication: DEVICE DISLOCATION
  4. PROPOFOL. [Suspect]
     Active Substance: PROPOFOL
     Indication: JOINT DISLOCATION
  5. PROPOFOL. [Suspect]
     Active Substance: PROPOFOL
     Indication: SEDATIVE THERAPY
     Dosage: 90 UG, UNK
  6. FENTANYL. [Concomitant]
     Active Substance: FENTANYL
     Indication: JOINT DISLOCATION
  7. FENTANYL. [Concomitant]
     Active Substance: FENTANYL
     Indication: DEVICE DISLOCATION
  8. MORPHINE [Concomitant]
     Active Substance: MORPHINE
     Indication: DEVICE DISLOCATION
  9. MORPHINE [Concomitant]
     Active Substance: MORPHINE
     Indication: JOINT DISLOCATION

REACTIONS (1)
  - Dystonia [Recovered/Resolved]
